FAERS Safety Report 5272628-0 (Version None)
Quarter: 2007Q1

REPORT INFORMATION
  Report Type: 
  Country: None (occurrence: None)
  Receive Date: 20070322
  Receipt Date: 20070316
  Transmission Date: 20070707
  Serious: Yes (Death)
  Sender: FDA-Public Use
  Company Number: PHBS2007JP04731

PATIENT
  Age: 85 Year
  Sex: Female

DRUGS (3)
  1. ZOMETA [Suspect]
     Indication: TONGUE NEOPLASM MALIGNANT STAGE UNSPECIFIED
     Dosage: 2 MG, UNK
     Dates: start: 20070313
  2. THEOPHYLLINE [Concomitant]
  3. HYPEN [Concomitant]

REACTIONS (3)
  - ANAPHYLACTIC SHOCK [None]
  - MALAISE [None]
  - WHEEZING [None]
